FAERS Safety Report 20129394 (Version 2)
Quarter: 2021Q4

REPORT INFORMATION
  Report Type: Other
  Country: US (occurrence: None)
  Receive Date: 20211130
  Receipt Date: 20211217
  Transmission Date: 20220303
  Serious: Yes (Hospitalization, Other)
  Sender: FDA-Public Use
  Company Number: US-ROCHE-2646113

PATIENT
  Age: 46 Year
  Sex: Male
  Weight: 131.66 kg

DRUGS (16)
  1. OCREVUS [Suspect]
     Active Substance: OCRELIZUMAB
     Indication: Relapsing-remitting multiple sclerosis
     Dosage: DAY 1 AND DAY 15, 2 INFUSE 600 MG EVERY 6 MONTHS?STARTED ABOUT 2.5 YEARS AGO
     Route: 042
     Dates: start: 201911
  2. LYRICA [Suspect]
     Active Substance: PREGABALIN
     Indication: Neuralgia
     Route: 048
     Dates: start: 2017
  3. XARELTO [Concomitant]
     Active Substance: RIVAROXABAN
     Indication: Deep vein thrombosis
     Route: 048
     Dates: start: 2016
  4. VITAMIN D3 [Concomitant]
     Active Substance: CHOLECALCIFEROL
  5. PRILOSEC [Concomitant]
     Active Substance: OMEPRAZOLE MAGNESIUM
  6. LIORESAL [Concomitant]
     Active Substance: BACLOFEN
  7. OXCARBAZEPINE [Concomitant]
     Active Substance: OXCARBAZEPINE
     Indication: Neuralgia
  8. TRAMADOL [Concomitant]
     Active Substance: TRAMADOL
     Indication: Pain
  9. ERGOCALCIFEROL [Concomitant]
     Active Substance: ERGOCALCIFEROL
     Indication: Multiple sclerosis
  10. NIACIN [Concomitant]
     Active Substance: NIACIN
     Indication: Hyperhidrosis
  11. TRILEPTAL [Concomitant]
     Active Substance: OXCARBAZEPINE
  12. ATIVAN [Concomitant]
     Active Substance: LORAZEPAM
  13. LIDOCAINE [Concomitant]
     Active Substance: LIDOCAINE
  14. NIZORAL [Concomitant]
     Active Substance: KETOCONAZOLE
  15. DESOWEN [Concomitant]
     Active Substance: DESONIDE
  16. VALIUM [Concomitant]
     Active Substance: DIAZEPAM
     Route: 048

REACTIONS (10)
  - Multiple sclerosis [Not Recovered/Not Resolved]
  - Multiple sclerosis relapse [Recovered/Resolved]
  - Fall [Unknown]
  - Femur fracture [Recovered/Resolved]
  - Wrist fracture [Recovering/Resolving]
  - Joint range of motion decreased [Recovering/Resolving]
  - Memory impairment [Not Recovered/Not Resolved]
  - Fatigue [Recovered/Resolved]
  - Visual impairment [Recovered/Resolved]
  - Peripheral swelling [Not Recovered/Not Resolved]

NARRATIVE: CASE EVENT DATE: 20200701
